FAERS Safety Report 5674795-3 (Version None)
Quarter: 2008Q1

REPORT INFORMATION
  Report Type: 
  Country: None (occurrence: None)
  Receive Date: 20080320
  Receipt Date: 20080311
  Transmission Date: 20080703
  Serious: Yes (Hospitalization)
  Sender: FDA-Public Use
  Company Number: US-PFIZER INC-2008023285

PATIENT
  Sex: Female

DRUGS (4)
  1. HALCION [Suspect]
     Indication: INSOMNIA
  2. CLINDAMYCIN HCL [Concomitant]
  3. EFFEXOR [Concomitant]
  4. CITALOPRAM HYDROBROMIDE [Concomitant]

REACTIONS (2)
  - DRUG INEFFECTIVE [None]
  - UNEVALUABLE EVENT [None]
